FAERS Safety Report 13790636 (Version 1)
Quarter: 2017Q3

REPORT INFORMATION
  Report Type: Spontaneous
  Country: US (occurrence: US)
  Receive Date: 20170725
  Receipt Date: 20170725
  Transmission Date: 20171127
  Serious: No
  Sender: FDA-Public Use
  Company Number: US-GALDERMA-US17001718

PATIENT
  Age: 30 Year
  Sex: Female
  Weight: 53.52 kg

DRUGS (1)
  1. DIFFERIN GEL [Suspect]
     Active Substance: ADAPALENE
     Indication: ACNE
     Dosage: 0.1%
     Route: 061
     Dates: start: 20170304, end: 20170312

REACTIONS (3)
  - Acne [Unknown]
  - Dry skin [Unknown]
  - Pain of skin [Unknown]

NARRATIVE: CASE EVENT DATE: 201703
